FAERS Safety Report 7778258-0 (Version None)
Quarter: 2011Q3

REPORT INFORMATION
  Report Type: 
  Country: None (occurrence: None)
  Receive Date: 20110926
  Receipt Date: 20110915
  Transmission Date: 20111222
  Serious: Yes (Hospitalization)
  Sender: FDA-Public Use
  Company Number: PHHO2006US15681

PATIENT
  Sex: Male

DRUGS (25)
  1. FISH OIL [Concomitant]
  2. FOSAMAX [Concomitant]
  3. PREDNISONE [Concomitant]
     Indication: TRANSPLANT
     Dosage: 5 MG, QD
     Route: 048
     Dates: start: 20050119
  4. INSULIN [Concomitant]
  5. ZORTRESS [Suspect]
     Dosage: 2 MG, QD
     Dates: start: 20060918, end: 20060918
  6. COLACE [Concomitant]
  7. ZORTRESS [Suspect]
     Dosage: 2 MG, QD
     Dates: start: 20061003, end: 20061003
  8. PROGRAF [Concomitant]
     Indication: TRANSPLANT
     Dosage: 2 MG, BID
     Route: 048
     Dates: start: 20050119
  9. ASPIRIN [Concomitant]
  10. CLONIDINE [Concomitant]
  11. ZORTRESS [Suspect]
     Dosage: 2 MG, BID
     Dates: start: 20051201, end: 20060917
  12. ZORTRESS [Suspect]
     Dosage: 2 MG, QD
     Dates: start: 20070227, end: 20070227
  13. ZORTRESS [Suspect]
     Dosage: 2 MG, BID
     Dates: start: 20070228
  14. LIPITOR [Concomitant]
  15. OSCAL [Concomitant]
  16. ZETIA [Concomitant]
  17. ZORTRESS [Suspect]
     Dosage: 2 MG, BID
     Dates: start: 20061004, end: 20070226
  18. HUMALOG [Concomitant]
  19. SIMVASTATIN [Concomitant]
  20. ZORTRESS [Suspect]
     Indication: RENAL TRANSPLANT
     Dosage: 2 MG, BID
     Route: 048
     Dates: start: 20050718, end: 20051129
  21. ATENOLOL [Concomitant]
  22. ILETIN [Concomitant]
  23. NEXIUM [Concomitant]
  24. TESTOSTERONE [Concomitant]
  25. ENALAPRIL MALEATE [Concomitant]

REACTIONS (7)
  - LOCALISED INFECTION [None]
  - SKIN ULCER [None]
  - PURULENT DISCHARGE [None]
  - SWELLING [None]
  - OSTEOMYELITIS [None]
  - ERYTHEMA [None]
  - CONCOMITANT DISEASE PROGRESSION [None]
